FAERS Safety Report 22399289 (Version 1)
Quarter: 2023Q2

REPORT INFORMATION
  Report Type: Spontaneous
  Country: US (occurrence: US)
  Receive Date: 20230602
  Receipt Date: 20230602
  Transmission Date: 20230721
  Serious: Yes (Other)
  Sender: FDA-Public Use
  Company Number: US-MYLANLABS-2023M1057058

PATIENT
  Age: 20 Year
  Sex: Female

DRUGS (1)
  1. BUDESONIDE [Suspect]
     Active Substance: BUDESONIDE
     Indication: Collagenous gastritis
     Dosage: 9 MILLIGRAM, QD
     Route: 061

REACTIONS (1)
  - Drug ineffective [Unknown]
